FAERS Safety Report 12227383 (Version 1)
Quarter: 2016Q1

REPORT INFORMATION
  Report Type: Report from Study
  Country: US (occurrence: US)
  Receive Date: 20160331
  Receipt Date: 20160331
  Transmission Date: 20160526
  Serious: Yes (Hospitalization, Other)
  Sender: FDA-Public Use
  Company Number: US-GILEAD-2016-0206170

PATIENT
  Age: 59 Year
  Sex: Female

DRUGS (1)
  1. LEDIPASVIR/SOFOSBUVIR [Suspect]
     Active Substance: LEDIPASVIR\SOFOSBUVIR
     Indication: HEPATITIS C
     Dosage: 1 DF, QD
     Route: 048
     Dates: start: 20160127, end: 20160323

REACTIONS (14)
  - Fibromyalgia [Unknown]
  - Eye swelling [Unknown]
  - Malaise [Unknown]
  - Depression [Unknown]
  - Decreased appetite [Unknown]
  - Nausea [Unknown]
  - Heart rate decreased [Unknown]
  - Blood pressure abnormal [Unknown]
  - Insomnia [Unknown]
  - Loss of consciousness [Unknown]
  - Photophobia [Unknown]
  - Constipation [Unknown]
  - Diarrhoea [Unknown]
  - Depressed mood [Unknown]
